FAERS Safety Report 9529408 (Version 1)
Quarter: 2013Q1

REPORT INFORMATION
  Report Type: Spontaneous
  Country: US (occurrence: None)
  Receive Date: 20130318
  Receipt Date: 20130318
  Transmission Date: 20140127
  Serious: Yes (Hospitalization, Other)
  Sender: FDA-Public Use
  Company Number: 1301USA008767

PATIENT
  Age: 60 Year
  Sex: Male

DRUGS (2)
  1. PEG-INTRON (PEGINTERFERON ALFA-2B) POWDER FOR INJECTION [Suspect]
     Indication: HEPATITIS C
     Dosage: UNK, SUBCUTANEOUS
     Route: 058
     Dates: start: 20130102, end: 20130128
  2. RIBAVIRIN (RIBAVIRIN) CAPSULE [Suspect]
     Indication: HEPATITIS C
     Dosage: UNK, ORAL
     Route: 048
     Dates: start: 20130102, end: 20130128

REACTIONS (5)
  - Nervous system disorder [None]
  - Pyrexia [None]
  - White blood cell count decreased [None]
  - Headache [None]
  - Sinusitis [None]
